FAERS Safety Report 14959651 (Version 1)
Quarter: 2018Q2

REPORT INFORMATION
  Report Type: Spontaneous
  Country: US (occurrence: US)
  Receive Date: 20180531
  Receipt Date: 20180531
  Transmission Date: 20180711
  Serious: No
  Sender: FDA-Public Use
  Company Number: US-PERRIGO-17US031997

PATIENT
  Age: 59 Year
  Sex: Male
  Weight: 92.52 kg

DRUGS (1)
  1. MINOXIDIL. [Suspect]
     Active Substance: MINOXIDIL
     Indication: ALOPECIA
     Dosage: UNKNOWN, BID
     Route: 061
     Dates: start: 20171220, end: 20171226

REACTIONS (1)
  - Application site discolouration [Recovering/Resolving]

NARRATIVE: CASE EVENT DATE: 20171223
